FAERS Safety Report 23220755 (Version 3)
Quarter: 2025Q4

REPORT INFORMATION
  Report Type: Spontaneous
  Country: EU (occurrence: EU)
  Receive Date: 20231123
  Receipt Date: 20251203
  Transmission Date: 20260117
  Serious: Yes (Other)
  Sender: NOVARTIS
  Company Number: EU-002147023-NVSC2023ES247286

PATIENT
  Age: 66 Year
  Sex: Male

DRUGS (1)
  1. ELTROMBOPAG [Suspect]
     Active Substance: ELTROMBOPAG
     Indication: Spinal disorder
     Dosage: 150 MG, QD
     Route: 065

REACTIONS (5)
  - Hyperbilirubinaemia [Unknown]
  - Serum colour abnormal [Unknown]
  - Gamma-glutamyltransferase increased [Unknown]
  - Blood alkaline phosphatase [Unknown]
  - Product use in unapproved indication [Unknown]
